FAERS Safety Report 20675537 (Version 1)
Quarter: 2022Q2

REPORT INFORMATION
  Report Type: Spontaneous
  Country: FR (occurrence: FR)
  Receive Date: 20220405
  Receipt Date: 20220405
  Transmission Date: 20220720
  Serious: Yes (Hospitalization, Other)
  Sender: FDA-Public Use
  Company Number: FR-ALLERGAN-2210790US

PATIENT
  Sex: Male

DRUGS (9)
  1. SILODOSIN [Suspect]
     Active Substance: SILODOSIN
     Indication: Benign prostatic hyperplasia
     Dosage: 8 MG, QD
     Route: 048
     Dates: start: 20220123, end: 20220216
  2. CALCIUM PHOSPHATE, DIBASIC, ANHYDROUS\MAGNESIUM GLYCEROPHOSPHATE\PHOSP [Suspect]
     Active Substance: CALCIUM PHOSPHATE, DIBASIC, ANHYDROUS\MAGNESIUM GLYCEROPHOSPHATE\PHOSPHORIC ACID\SODIUM PHOSPHATE, D
     Indication: Product used for unknown indication
     Dosage: 25 GTT, QD
     Route: 048
     Dates: start: 20220111, end: 20220216
  3. LORAZEPAM [Suspect]
     Active Substance: LORAZEPAM
     Indication: Nervous system disorder
     Dosage: 3 DF, TID
     Route: 048
     Dates: start: 20220124, end: 20220216
  4. PANTOPRAZOLE [Suspect]
     Active Substance: PANTOPRAZOLE
     Indication: Oesophagitis
     Dosage: 40 MG
     Route: 048
     Dates: start: 20220105, end: 20220216
  5. SERTRALINE HYDROCHLORIDE [Suspect]
     Active Substance: SERTRALINE HYDROCHLORIDE
     Indication: Nervous system disorder
     Dosage: 50 MG, QD
     Route: 048
     Dates: start: 20220124, end: 20220216
  6. OXYCODONE HYDROCHLORIDE [Suspect]
     Active Substance: OXYCODONE HYDROCHLORIDE
     Indication: Pain
     Dosage: 10 MG, Q6HR
     Route: 048
     Dates: start: 20220122, end: 20220216
  7. LOVENOX [Concomitant]
     Active Substance: ENOXAPARIN SODIUM
     Indication: Vascular disorder prophylaxis
     Dosage: 1 DF, QD
     Route: 048
     Dates: start: 20220113, end: 20220216
  8. FOLIC ACID [Concomitant]
     Active Substance: FOLIC ACID
     Indication: Anaemia
     Dosage: 5 MG, BID
     Dates: start: 20220111
  9. VITAMIN B12 [Concomitant]
     Active Substance: CYANOCOBALAMIN
     Indication: Anaemia
     Dosage: 1000 ?G

REACTIONS (1)
  - Agranulocytosis [Recovered/Resolved]

NARRATIVE: CASE EVENT DATE: 20220216
